FAERS Safety Report 8125288-5 (Version None)
Quarter: 2012Q1

REPORT INFORMATION
  Report Type: 
  Country: None (occurrence: None)
  Receive Date: 20120206
  Receipt Date: 20120124
  Transmission Date: 20120608
  Serious: Yes (Other)
  Sender: FDA-Public Use
  Company Number: FR-2012-0487

PATIENT

DRUGS (2)
  1. VINORELBINE [Suspect]
     Indication: NEOPLASM MALIGNANT
     Dosage: 25 MG/M2 IV
     Route: 042
  2. VORINOSTAT (VORINOSTAT) [Suspect]
     Indication: NEOPLASM MALIGNANT
     Dosage: 200 MG

REACTIONS (2)
  - HYPERGLYCAEMIA [None]
  - TOXICITY TO VARIOUS AGENTS [None]
